FAERS Safety Report 5058322-X (Version None)
Quarter: 2006Q2

REPORT INFORMATION
  Report Type: 
  Country: None (occurrence: None)
  Receive Date: 20060628
  Receipt Date: 20060117
  Transmission Date: 20061013
  Serious: Yes (Hospitalization)
  Sender: FDA-Public Use
  Company Number: PHEH2006US01024

PATIENT
  Sex: Female

DRUGS (2)
  1. SIMULECT [Suspect]
     Dosage: SEE IMAGE
     Dates: start: 20060103, end: 20060103
  2. SIMULECT [Suspect]
     Dosage: SEE IMAGE
     Dates: start: 20060107, end: 20060107

REACTIONS (1)
  - NOCARDIOSIS [None]
